FAERS Safety Report 9370139 (Version 1)
Quarter: 2013Q2

REPORT INFORMATION
  Report Type: Spontaneous
  Country: US (occurrence: None)
  Receive Date: 20130621
  Receipt Date: 20130621
  Transmission Date: 20140414
  Serious: Yes (Other)
  Sender: FDA-Public Use
  Company Number: 2013AP005666

PATIENT
  Sex: 0

DRUGS (1)
  1. DEFERIPRONE [Suspect]
     Indication: THALASSAEMIA
     Route: 048
     Dates: start: 20130326

REACTIONS (1)
  - Agranulocytosis [None]
